FAERS Safety Report 17045162 (Version 1)
Quarter: 2019Q4

REPORT INFORMATION
  Report Type: Spontaneous
  Country: GB (occurrence: GB)
  Receive Date: 20191118
  Receipt Date: 20191118
  Transmission Date: 20200122
  Serious: No
  Sender: FDA-Public Use
  Company Number: GB-MARKSANS PHARMA LIMITED-2076971

PATIENT
  Sex: Female

DRUGS (3)
  1. METFORMIN COMMON MOLECULE FROM UK MARKET [Suspect]
     Active Substance: METFORMIN HYDROCHLORIDE
     Indication: DIABETES MELLITUS
     Route: 048
  2. SITAGLIPTIN PRODUCT FROM UK MARKET [Concomitant]
     Route: 048
  3. GLICLAZIDE PRODUCT FROM UK MARKET [Concomitant]
     Route: 048

REACTIONS (3)
  - Rash [None]
  - Hyperhidrosis [None]
  - Pruritus [None]
